FAERS Safety Report 7622444-7 (Version None)
Quarter: 2011Q3

REPORT INFORMATION
  Report Type: 
  Country: None (occurrence: None)
  Receive Date: 20110720
  Receipt Date: 20110712
  Transmission Date: 20111222
  Serious: Yes (Hospitalization)
  Sender: FDA-Public Use
  Company Number: US-ELI_LILLY_AND_COMPANY-US201107003497

PATIENT
  Sex: Male

DRUGS (4)
  1. HUMULIN 70/30 [Suspect]
     Indication: DIABETES MELLITUS
     Dosage: 40 U, EACH EVENING
     Route: 065
     Dates: start: 20090101
  2. HUMALOG MIX 50/50 [Suspect]
     Dosage: 50 U, EACH MORNING
     Route: 065
     Dates: start: 20090101
  3. HUMALOG MIX 50/50 [Suspect]
     Indication: DIABETES MELLITUS
     Dosage: 50 U, EACH MORNING
     Route: 065
     Dates: start: 20090101
  4. LANTUS [Concomitant]
     Dosage: UNK

REACTIONS (8)
  - CHEST PAIN [None]
  - ABDOMINAL PAIN [None]
  - BLOOD GLUCOSE INCREASED [None]
  - INCORRECT STORAGE OF DRUG [None]
  - STRESS [None]
  - JOINT INJURY [None]
  - HYPERGLYCAEMIA [None]
  - MUSCULOSKELETAL PAIN [None]
